FAERS Safety Report 10212989 (Version 2)
Quarter: 2014Q2

REPORT INFORMATION
  Report Type: Report from Study
  Country: AR (occurrence: AR)
  Receive Date: 20140602
  Receipt Date: 20140602
  Transmission Date: 20141212
  Serious: Yes (Other)
  Sender: FDA-Public Use
  Company Number: PHHY2013AR053672

PATIENT
  Age: 55 Year
  Sex: Female

DRUGS (2)
  1. TOBI [Suspect]
     Indication: CYSTIC FIBROSIS
     Dosage: 1 DF (300 MG/5 ML), BID
     Route: 055
  2. TOBI [Suspect]
     Dosage: 1 DF, DAILY
     Route: 055
     Dates: start: 2013, end: 20140225

REACTIONS (10)
  - Local swelling [Recovering/Resolving]
  - Pseudomonas test positive [Unknown]
  - Total lung capacity decreased [Unknown]
  - Dyspnoea [Recovering/Resolving]
  - Respiratory tract irritation [Unknown]
  - Fatigue [Unknown]
  - Throat irritation [Recovering/Resolving]
  - Productive cough [Recovering/Resolving]
  - Drug hypersensitivity [Unknown]
  - Device malfunction [Unknown]
